FAERS Safety Report 23773813 (Version 1)
Quarter: 2024Q2

REPORT INFORMATION
  Report Type: Spontaneous
  Country: US (occurrence: US)
  Receive Date: 20240423
  Receipt Date: 20240423
  Transmission Date: 20240716
  Serious: Yes (Other)
  Sender: FDA-Public Use
  Company Number: US-OTSUKA-2024_010458

PATIENT
  Sex: Female
  Weight: 78.02 kg

DRUGS (2)
  1. ABILIFY [Suspect]
     Active Substance: ARIPIPRAZOLE
     Indication: Major depression
     Dosage: UNK
     Route: 065
  2. ABILIFY [Suspect]
     Active Substance: ARIPIPRAZOLE
     Indication: Major depression
     Dosage: UNK
     Route: 065
     Dates: start: 202311

REACTIONS (14)
  - Hallucination, auditory [Not Recovered/Not Resolved]
  - Heart rate increased [Recovered/Resolved]
  - Suicidal ideation [Unknown]
  - Amnesia [Not Recovered/Not Resolved]
  - Movement disorder [Unknown]
  - Depression [Unknown]
  - Paranoia [Unknown]
  - Hyperphagia [Unknown]
  - Fatigue [Not Recovered/Not Resolved]
  - Constipation [Not Recovered/Not Resolved]
  - Vision blurred [Not Recovered/Not Resolved]
  - Somnolence [Unknown]
  - Anxiety [Not Recovered/Not Resolved]
  - Maternal exposure during pregnancy [Unknown]
